FAERS Safety Report 12831757 (Version 2)
Quarter: 2017Q2

REPORT INFORMATION
  Report Type: Report from Study
  Country: US (occurrence: US)
  Receive Date: 20161010
  Receipt Date: 20170505
  Transmission Date: 20170830
  Serious: Yes (Hospitalization, Other)
  Sender: FDA-Public Use
  Company Number: US-ROCHE-784123

PATIENT
  Age: 53 Year
  Sex: Female
  Weight: 65.8 kg

DRUGS (9)
  1. VELIPARIB [Suspect]
     Active Substance: VELIPARIB
     Dosage: 23/FEB/2011, 16/MAR/2011, 06/APR/2011,01/JUN/2011,
     Route: 048
  2. CARBOPLATIN. [Suspect]
     Active Substance: CARBOPLATIN
     Indication: OVARIAN EPITHELIAL CANCER
     Dosage: AUC 6 OVER 30 MIN ON DAY 1, CYCLES 1-6 TOTAL DOSE 657 MG
     Route: 042
     Dates: start: 20110201
  3. VELIPARIB [Suspect]
     Active Substance: VELIPARIB
     Indication: OVARIAN EPITHELIAL CANCER
     Dosage: LAST DOSE OF DRUG: 10 APRIL 2011; ON DAYS 1-21. CYCLE: 1-22. TOTAL DOSE: 900 MG
     Route: 048
  4. BEVACIZUMAB [Suspect]
     Active Substance: BEVACIZUMAB
     Dosage: 18/JAN/2012, 08/FEB/2012,  29/FEB/2012, 21/MAR/2012, 11/APR/2012 AND 02/MAY/2012
     Route: 042
     Dates: start: 20111228
  5. VELIPARIB [Suspect]
     Active Substance: VELIPARIB
     Route: 048
  6. PACLITAXEL. [Suspect]
     Active Substance: PACLITAXEL
     Indication: OVARIAN EPITHELIAL CANCER
     Route: 042
     Dates: start: 20110201
  7. VENLAFAXINE [Concomitant]
     Active Substance: VENLAFAXINE HYDROCHLORIDE
     Dosage: DRUG NAME: EFFEXOR.
     Route: 065
  8. BEVACIZUMAB [Suspect]
     Active Substance: BEVACIZUMAB
     Dosage: 16/MAR/2011, 06/APR/2011, 05/MAY/2011, 01/JUN/2011, 22/JUN/2011, 13/JUL/2011, 03/AUG/2011, 24/AG/201
     Route: 042
     Dates: start: 20110223
  9. BEVACIZUMAB [Suspect]
     Active Substance: BEVACIZUMAB
     Indication: OVARIAN EPITHELIAL CANCER
     Route: 042
     Dates: start: 20110201

REACTIONS (6)
  - Syncope [Recovered/Resolved]
  - Pelvic pain [Unknown]
  - Neutrophil count decreased [Unknown]
  - Hyperglycaemia [Unknown]
  - White blood cell count decreased [Unknown]
  - Hypertension [Unknown]

NARRATIVE: CASE EVENT DATE: 20110410
